FAERS Safety Report 21411124 (Version 1)
Quarter: 2022Q4

REPORT INFORMATION
  Report Type: Spontaneous
  Country: NO (occurrence: NO)
  Receive Date: 20221005
  Receipt Date: 20221005
  Transmission Date: 20230112
  Serious: Yes (Other)
  Sender: FDA-Public Use
  Company Number: None

PATIENT
  Age: 23 Year
  Sex: Female

DRUGS (1)
  1. CLINDAMYCIN PHOSPHATE [Suspect]
     Active Substance: CLINDAMYCIN PHOSPHATE
     Indication: Bacterial vaginosis
     Dosage: 100 MG, 1X/DAY
     Route: 067
     Dates: start: 20220516, end: 20220519

REACTIONS (4)
  - Haemorrhage [Recovering/Resolving]
  - Malaise [Unknown]
  - Dermatitis allergic [Unknown]
  - Fatigue [Unknown]

NARRATIVE: CASE EVENT DATE: 20220518
